FAERS Safety Report 9580532 (Version 1)
Quarter: 2013Q3

REPORT INFORMATION
  Report Type: Spontaneous
  Country: US (occurrence: None)
  Receive Date: 20130916
  Receipt Date: 20130916
  Transmission Date: 20140515
  Serious: Yes (Hospitalization)
  Sender: FDA-Public Use
  Company Number: JPI-P-023281

PATIENT
  Age: 36 Year
  Sex: Female

DRUGS (1)
  1. XYREM [Suspect]
     Indication: CATAPLEXY
     Route: 048
     Dates: start: 20111121, end: 201207

REACTIONS (10)
  - Psychotic disorder [None]
  - Paranoia [None]
  - Hallucination [None]
  - Fear [None]
  - Stress [None]
  - Blood pressure decreased [None]
  - Poor quality sleep [None]
  - Sleep terror [None]
  - Pain in extremity [None]
  - Pain of skin [None]
